FAERS Safety Report 25847728 (Version 1)
Quarter: 2025Q3

REPORT INFORMATION
  Report Type: Spontaneous
  Country: EU (occurrence: EU)
  Receive Date: 20250925
  Receipt Date: 20250925
  Transmission Date: 20251021
  Serious: Yes (Other)
  Sender: GILEAD
  Company Number: EU-GILEAD-2024-0692147

PATIENT
  Age: 44 Year
  Sex: Female

DRUGS (1)
  1. TRODELVY [Suspect]
     Active Substance: SACITUZUMAB GOVITECAN-HZIY
     Indication: Breast cancer
     Route: 065

REACTIONS (4)
  - Disease progression [Unknown]
  - Anaemia [Unknown]
  - Fatigue [Unknown]
  - Diarrhoea [Unknown]
